FAERS Safety Report 9744853 (Version 3)
Quarter: 2013Q4

REPORT INFORMATION
  Report Type: Report from Study
  Country: CO (occurrence: CO)
  Receive Date: 20131211
  Receipt Date: 20131218
  Transmission Date: 20140711
  Serious: Yes (Hospitalization)
  Sender: FDA-Public Use
  Company Number: CO-ROCHE-1288744

PATIENT
  Age: 49 Year
  Sex: Male
  Weight: 61 kg

DRUGS (4)
  1. RANIBIZUMAB [Suspect]
     Indication: RETINAL DISORDER
     Route: 050
     Dates: start: 20120917
  2. RANIBIZUMAB [Suspect]
     Indication: MACULAR DEGENERATION
  3. RANIBIZUMAB [Suspect]
     Indication: DIABETIC RETINAL OEDEMA
  4. HUMULIN [Concomitant]
     Indication: DIABETES MELLITUS
     Route: 065

REACTIONS (2)
  - Diabetic foot infection [Recovered/Resolved]
  - Diabetic foot [Unknown]
